FAERS Safety Report 9232020 (Version 1)
Quarter: 2013Q2

REPORT INFORMATION
  Report Type: Spontaneous
  Country: US (occurrence: US)
  Receive Date: 20130415
  Receipt Date: 20130415
  Transmission Date: 20140414
  Serious: No
  Sender: FDA-Public Use
  Company Number: US-PFIZER INC-2013114701

PATIENT
  Age: 55 Year
  Sex: Male
  Weight: 86.17 kg

DRUGS (6)
  1. CEFTRIAXONE [Suspect]
     Dosage: UNK
  2. ALDACTONE [Suspect]
     Dosage: UNK
  3. NORVASC [Suspect]
     Dosage: UNK
  4. ZOSYN [Suspect]
     Dosage: UNK
  5. ATORVASTATIN CALCIUM [Suspect]
     Dosage: UNK
  6. IMURAN [Suspect]
     Dosage: UNK

REACTIONS (1)
  - Drug hypersensitivity [Unknown]
